FAERS Safety Report 20913569 (Version 1)
Quarter: 2022Q2

REPORT INFORMATION
  Report Type: Spontaneous
  Country: US (occurrence: US)
  Receive Date: 20220604
  Receipt Date: 20220604
  Transmission Date: 20220721
  Serious: No
  Sender: FDA-Public Use
  Company Number: US-MSNLABS-2022MSNSPO00562

PATIENT

DRUGS (11)
  1. CAPECITABINE [Suspect]
     Active Substance: CAPECITABINE
     Indication: Breast cancer
     Dosage: 3 CYCLES,DAY 01 TO DAY14
     Route: 065
  2. CAPECITABINE [Suspect]
     Active Substance: CAPECITABINE
     Dosage: FROM DAY 01 TO DAY14
     Route: 065
  3. Docetaxol Q 21 [Concomitant]
     Indication: Product used for unknown indication
     Dosage: FOR 21 DAYS
     Route: 065
  4. MOMETASONE [Concomitant]
     Active Substance: MOMETASONE
     Indication: Skin reaction
     Route: 065
  5. LEVOTHYROXINE [Concomitant]
     Active Substance: LEVOTHYROXINE
     Indication: Product used for unknown indication
     Route: 065
  6. METOCLOPRAMIDE [Concomitant]
     Active Substance: METOCLOPRAMIDE
     Indication: Product used for unknown indication
     Route: 065
  7. NEUPOGEN [Concomitant]
     Active Substance: FILGRASTIM
     Indication: Product used for unknown indication
     Route: 065
  8. Ondansetron benadryl [Concomitant]
     Indication: Product used for unknown indication
     Route: 065
  9. Turmertic capsules [Concomitant]
     Indication: Product used for unknown indication
     Route: 065
  10. Beetroot powder [Concomitant]
     Indication: Product used for unknown indication
     Route: 065
  11. ALUMINUM HYDROXIDE\DIMETHICONE\DIPHENHYDRAMINE\LIDOCAINE\MAGNESIUM HYD [Concomitant]
     Active Substance: ALUMINUM HYDROXIDE\DIMETHICONE\DIPHENHYDRAMINE\LIDOCAINE\MAGNESIUM HYDROXIDE
     Indication: Product used for unknown indication
     Route: 065

REACTIONS (3)
  - Skin swelling [Unknown]
  - Skin burning sensation [Unknown]
  - Skin discolouration [Unknown]
